FAERS Safety Report 7824943-1 (Version None)
Quarter: 2011Q4

REPORT INFORMATION
  Report Type: 
  Country: None (occurrence: None)
  Receive Date: 20111019
  Receipt Date: 20110304
  Transmission Date: 20120403
  Serious: No
  Sender: FDA-Public Use
  Company Number: US-BRISTOL-MYERS SQUIBB COMPANY-15588742

PATIENT
  Age: 66 Year
  Sex: Male

DRUGS (2)
  1. METOPROLOL TARTRATE [Concomitant]
  2. AVALIDE [Suspect]
     Indication: BLOOD PRESSURE
     Dosage: 1DF=300/25 MG. STARTED ABOUT A YEAR

REACTIONS (1)
  - DRUG INEFFECTIVE [None]
